FAERS Safety Report 14520355 (Version 3)
Quarter: 2019Q1

REPORT INFORMATION
  Report Type: Spontaneous
  Country: DE (occurrence: DE)
  Receive Date: 20180212
  Receipt Date: 20190319
  Transmission Date: 20190417
  Serious: Yes (Other)
  Sender: FDA-Public Use
  Company Number: DE-MYLANLABS-2018M1009071

PATIENT
  Age: 75 Year
  Sex: Male
  Weight: 81 kg

DRUGS (21)
  1. HEPARIN-RATIOPHARM [Suspect]
     Active Substance: HEPARIN SODIUM
     Dosage: 70000 IU, UNK
     Route: 042
  2. ASPIRIN. [Concomitant]
     Active Substance: ASPIRIN
     Indication: PRODUCT USED FOR UNKNOWN INDICATION
     Dosage: 70000 INTERNATIONAL UNIT, QD (100 MG, QD)
  3. NORADRENALIN                       /00127501/ [Concomitant]
     Active Substance: NOREPINEPHRINE\NOREPINEPHRINE BITARTRATE
     Dosage: 70000 IU, QD (1MICROGRAM )
     Route: 065
     Dates: start: 20170830
  4. HEPARIN-NATRIUM [Interacting]
     Active Substance: HEPARIN SODIUM
     Indication: PRODUCT USED FOR UNKNOWN INDICATION
     Dosage: UNK
     Route: 065
  5. HEPARIN-RATIOPHARM [Suspect]
     Active Substance: HEPARIN SODIUM
     Dosage: 70000 INTERNATIONAL UNIT, QD
     Route: 065
  6. NORADRENALIN                       /00127501/ [Concomitant]
     Active Substance: NOREPINEPHRINE\NOREPINEPHRINE BITARTRATE
     Indication: PRODUCT USED FOR UNKNOWN INDICATION
     Dosage: UNK
     Route: 065
  7. STEROFUNDIN [Concomitant]
     Active Substance: CALCIUM CHLORIDE\MAGNESIUM CHLORIDE\POTASSIUM CHLORIDE\SODIUM ACETATE\SODIUM CHLORIDE
     Indication: PRODUCT USED FOR UNKNOWN INDICATION
     Dosage: 70000 IU, QD
     Route: 065
     Dates: start: 20170830
  8. NOREPINEPHRINE. [Concomitant]
     Active Substance: NOREPINEPHRINE
     Dosage: 70000 INTERNATIONAL UNIT, QD
     Route: 065
     Dates: start: 20170830
  9. TRANEXAMIC ACID. [Suspect]
     Active Substance: TRANEXAMIC ACID
     Indication: PRODUCT USED FOR UNKNOWN INDICATION
     Dosage: 70000 INTERNATIONAL UNIT, QD (2 G, QD )
     Route: 065
  10. TRANEXAMSAEURE CARINO [Interacting]
     Active Substance: TRANEXAMIC ACID
     Indication: PRODUCT USED FOR UNKNOWN INDICATION
     Dosage: 2 G, QD
     Route: 065
  11. TRANEXAMSAEURE CARINO [Interacting]
     Active Substance: TRANEXAMIC ACID
     Dosage: 70000 INTERNATIONAL UNIT, QD (2 GRAM, QD)
     Route: 065
  12. NOREPINEPHRINE. [Concomitant]
     Active Substance: NOREPINEPHRINE
     Dosage: 70000 INTERNATIONAL UNIT, QD (1 MICROGRAM)
     Route: 065
     Dates: start: 20170830
  13. ATORVASTATIN [Concomitant]
     Active Substance: ATORVASTATIN
     Indication: PRODUCT USED FOR UNKNOWN INDICATION
     Dosage: 70000 INTERNATIONAL UNIT, QD (40 MG ,QD)
     Route: 065
  14. CUSTODIOL                          /04792301/ [Concomitant]
     Active Substance: CALCIUM CL\HISTIDINE\MAGNESIUM\MANNITOL\POTASSIUM\SODIUM CL\TRYPTOPHAN
     Indication: PRODUCT USED FOR UNKNOWN INDICATION
     Dosage: ( (70000 IU, DAILY) (950 ML)
     Route: 065
     Dates: start: 20170830
  15. HEPARIN-NATRIUM [Interacting]
     Active Substance: HEPARIN SODIUM
     Dosage: (70000 IU, QD (3000 IU, DAILY)
     Route: 065
     Dates: start: 20170830, end: 20170830
  16. HEPARIN-RATIOPHARM [Suspect]
     Active Substance: HEPARIN SODIUM
     Dosage: 70000 INTERNATIONAL UNIT, QD
  17. SEVORANE [Concomitant]
     Active Substance: SEVOFLURANE
     Indication: PRODUCT USED FOR UNKNOWN INDICATION
     Dosage: 70000 IU, QD
     Route: 065
     Dates: start: 20170830
  18. HEPARIN-RATIOPHARM [Suspect]
     Active Substance: HEPARIN SODIUM
     Indication: PRODUCT USED FOR UNKNOWN INDICATION
     Dosage: 70000 IU, QD
     Route: 042
  19. TRAVATAN [Concomitant]
     Active Substance: TRAVOPROST
     Indication: PRODUCT USED FOR UNKNOWN INDICATION
     Dosage: UNK
  20. TAMSULOSIN [Concomitant]
     Active Substance: TAMSULOSIN
     Indication: PRODUCT USED FOR UNKNOWN INDICATION
     Dosage: 70000 INTERNATIONAL UNIT, QD (1 DF, QD)
     Route: 065
  21. NORADRENALIN                       /00127501/ [Concomitant]
     Active Substance: NOREPINEPHRINE\NOREPINEPHRINE BITARTRATE
     Dosage: UNK

REACTIONS (11)
  - Coagulation test abnormal [Unknown]
  - Drug ineffective [Unknown]
  - Blood pressure decreased [Unknown]
  - Coagulation time abnormal [Unknown]
  - Vasodilatation [Recovered/Resolved]
  - Haemoglobin increased [Recovered/Resolved]
  - Multiple organ dysfunction syndrome [Recovered/Resolved]
  - Therapeutic response decreased [Unknown]
  - Arrhythmia [Unknown]
  - Drug interaction [Unknown]
  - Hypotension [Unknown]

NARRATIVE: CASE EVENT DATE: 20170830
